FAERS Safety Report 8633019 (Version 5)
Quarter: 2013Q3

REPORT INFORMATION
  Report Type: Spontaneous
  Country: JP (occurrence: JP)
  Receive Date: 20120625
  Receipt Date: 20130815
  Transmission Date: 20140515
  Serious: Yes (Life-Threatening, Hospitalization)
  Sender: FDA-Public Use
  Company Number: JP-GLAXOSMITHKLINE-B0809927A

PATIENT
  Age: 39 Year
  Sex: Female
  Weight: 57 kg

DRUGS (10)
  1. LAMICTAL [Suspect]
     Indication: BIPOLAR DISORDER
     Dosage: 25MG PER DAY
     Route: 048
     Dates: start: 20120406, end: 20120426
  2. LAMICTAL [Suspect]
     Indication: BIPOLAR DISORDER
     Dosage: 50MG PER DAY
     Route: 048
     Dates: start: 20120426, end: 20120504
  3. PAXIL [Suspect]
     Indication: DEPRESSION
     Dosage: 10MG PER DAY
     Route: 048
     Dates: start: 20120406, end: 20120426
  4. PAXIL [Suspect]
     Indication: DEPRESSION
     Dosage: 20MG PER DAY
     Route: 048
     Dates: start: 20120426, end: 20120504
  5. SENIRAN [Suspect]
     Indication: ANXIETY
     Dosage: 2MG TWICE PER DAY
     Route: 048
     Dates: start: 20120406, end: 20120504
  6. TRANSAMIN [Suspect]
     Indication: CHLOASMA
     Dosage: 250MG THREE TIMES PER DAY
     Route: 048
     Dates: start: 201201, end: 20120504
  7. CINAL [Suspect]
     Indication: CHLOASMA
     Dosage: 200MG THREE TIMES PER DAY
     Route: 048
     Dates: start: 201201, end: 20120504
  8. THEOPHYLLINE [Concomitant]
     Route: 048
     Dates: end: 20120504
  9. BETASELEMIN [Concomitant]
     Route: 048
     Dates: end: 20120504
  10. CETIRIZINE HYDROCHLORIDE [Concomitant]
     Indication: URTICARIA CHRONIC
     Route: 048
     Dates: end: 20120504

REACTIONS (10)
  - Stevens-Johnson syndrome [Recovering/Resolving]
  - Toxic epidermal necrolysis [Recovering/Resolving]
  - Keratitis [Not Recovered/Not Resolved]
  - Eye swelling [Unknown]
  - Anal pruritus [Unknown]
  - Anorectal swelling [Unknown]
  - Oedema mouth [Unknown]
  - Lymphocyte stimulation test positive [Unknown]
  - Eye pruritus [Unknown]
  - Rash generalised [Unknown]
